FAERS Safety Report 7134475-4 (Version None)
Quarter: 2010Q4

REPORT INFORMATION
  Report Type: 
  Country: None (occurrence: None)
  Receive Date: 20101203
  Receipt Date: 20101130
  Transmission Date: 20110411
  Serious: Yes (Other)
  Sender: FDA-Public Use
  Company Number: US-PFIZER INC-2010121717

PATIENT
  Sex: Male

DRUGS (4)
  1. CHANTIX [Suspect]
     Indication: SMOKING CESSATION THERAPY
     Dosage: 0.5MG/1MG
     Dates: start: 20070601, end: 20080101
  2. DARVOCET [Concomitant]
     Indication: JOINT INJURY
     Dosage: UNK
     Dates: start: 20030101
  3. VIOXX [Concomitant]
     Indication: JOINT INJURY
     Dosage: UNK
     Dates: start: 20030101, end: 20100101
  4. NAPROSYN [Concomitant]
     Indication: JOINT INJURY
     Dosage: UNK
     Dates: start: 20030101, end: 20100101

REACTIONS (10)
  - ABNORMAL BEHAVIOUR [None]
  - AFFECTIVE DISORDER [None]
  - AGGRESSION [None]
  - AGITATION [None]
  - ANGER [None]
  - ANXIETY [None]
  - DEPRESSION [None]
  - MOOD SWINGS [None]
  - PERSONALITY DISORDER [None]
  - SUICIDAL IDEATION [None]
